FAERS Safety Report 6813895-9 (Version None)
Quarter: 2010Q3

REPORT INFORMATION
  Report Type: 
  Country: None (occurrence: None)
  Receive Date: 20100702
  Receipt Date: 20100623
  Transmission Date: 20110219
  Serious: Yes (Hospitalization, Other)
  Sender: FDA-Public Use
  Company Number: US-MERCK-0705USA02843

PATIENT
  Age: 56 Year
  Sex: Female
  Weight: 47 kg

DRUGS (3)
  1. FOSAMAX [Suspect]
     Indication: OSTEOPOROSIS
     Route: 048
     Dates: start: 20030710, end: 20051201
  2. FOSAMAX [Suspect]
     Route: 048
     Dates: start: 20060309, end: 20090101
  3. FOSAMAX [Suspect]
     Route: 048
     Dates: start: 20090825

REACTIONS (50)
  - ABDOMINAL DISCOMFORT [None]
  - ACTINIC KERATOSIS [None]
  - ANAEMIA OF CHRONIC DISEASE [None]
  - ARTHROPATHY [None]
  - ATRIAL FIBRILLATION [None]
  - BLOOD CREATININE INCREASED [None]
  - BLOOD UREA INCREASED [None]
  - BREAST DISORDER [None]
  - CHRONIC OBSTRUCTIVE PULMONARY DISEASE [None]
  - COLON INJURY [None]
  - COR PULMONALE [None]
  - DEHYDRATION [None]
  - DENTAL CARIES [None]
  - DRUG HYPERSENSITIVITY [None]
  - DRUG INEFFECTIVE [None]
  - ECZEMA [None]
  - EMPHYSEMA [None]
  - ERYTHEMA [None]
  - FALL [None]
  - FIBROMYALGIA [None]
  - GASTRIC DISORDER [None]
  - GASTRITIS [None]
  - GINGIVAL SWELLING [None]
  - GLUCOSE TOLERANCE IMPAIRED [None]
  - HAEMORRHOIDS [None]
  - HYPERTENSION [None]
  - HYPONATRAEMIA [None]
  - HYPOTENSION [None]
  - HYPOVOLAEMIA [None]
  - INTERSTITIAL LUNG DISEASE [None]
  - IRON DEFICIENCY ANAEMIA [None]
  - IRRITABLE BOWEL SYNDROME [None]
  - LEUKOCYTOSIS [None]
  - LOOSE TOOTH [None]
  - METAPLASIA [None]
  - MICROCYTIC ANAEMIA [None]
  - OCCULT BLOOD POSITIVE [None]
  - ORAL CANDIDIASIS [None]
  - OVERDOSE [None]
  - PAIN IN JAW [None]
  - PNEUMONIA [None]
  - POLYMYALGIA RHEUMATICA [None]
  - RASH PRURITIC [None]
  - RENAL CYST [None]
  - RENAL FAILURE ACUTE [None]
  - RHEUMATOID ARTHRITIS [None]
  - ROTATOR CUFF SYNDROME [None]
  - TACHYPNOEA [None]
  - URINARY TRACT INFECTION [None]
  - WEIGHT INCREASED [None]
